FAERS Safety Report 4651624-8 (Version None)
Quarter: 2005Q2

REPORT INFORMATION
  Report Type: 
  Country: None (occurrence: None)
  Receive Date: 20050502
  Receipt Date: 20050418
  Transmission Date: 20051028
  Serious: Yes (Hospitalization)
  Sender: FDA-Public Use
  Company Number: S05-USA-02019-01

PATIENT
  Age: 90 Year
  Sex: Female

DRUGS (3)
  1. LEXAPRO [Suspect]
     Indication: DEPRESSION
     Dosage: 10 MG QD PO
     Route: 048
     Dates: start: 20050325
  2. REMERON [Suspect]
     Indication: DEPRESSION
     Dates: start: 19950101, end: 20050324
  3. BLOOD PRESSURE MEDICATIONS (NOS) [Concomitant]

REACTIONS (2)
  - CEREBROVASCULAR ACCIDENT [None]
  - NERVOUSNESS [None]
